FAERS Safety Report 14355033 (Version 1)
Quarter: 2018Q1

REPORT INFORMATION
  Report Type: Report from Study
  Country: BE (occurrence: BE)
  Receive Date: 20180105
  Receipt Date: 20180105
  Transmission Date: 20180509
  Serious: Yes (Other)
  Sender: FDA-Public Use
  Company Number: BE-PFIZER INC-2018001267

PATIENT
  Age: 73 Year
  Sex: Female
  Weight: 52.4 kg

DRUGS (10)
  1. PACLITAXEL. [Suspect]
     Active Substance: PACLITAXEL
     Indication: OVARIAN CANCER
     Dosage: 212.8 MG/M2, EVERY 3 WEEKS
     Route: 042
     Dates: start: 20160929
  2. LYRICA [Concomitant]
     Active Substance: PREGABALIN
     Dosage: UNK
     Route: 065
     Dates: start: 20160928
  3. CARBOPLATIN. [Suspect]
     Active Substance: CARBOPLATIN
     Indication: OVARIAN CANCER
     Dosage: UNK UNK, EVERY 3 WEEKS
     Route: 042
     Dates: start: 20160818
  4. AVASTIN [Suspect]
     Active Substance: BEVACIZUMAB
     Indication: OVARIAN CANCER
     Dosage: 810 MG, EVERY 3 WEEKS
     Route: 042
     Dates: start: 20160908
  5. DEXAMETHASONE. [Concomitant]
     Active Substance: DEXAMETHASONE
     Dosage: UNK
     Route: 065
     Dates: start: 20160817, end: 20160908
  6. PACLITAXEL. [Suspect]
     Active Substance: PACLITAXEL
     Dosage: 269.5 MG/M2, EVERY 3 WEEKS
     Route: 042
     Dates: start: 20160818
  7. CETIRIZINE [Concomitant]
     Active Substance: CETIRIZINE HYDROCHLORIDE
     Dosage: UNK
     Route: 065
     Dates: start: 20160817, end: 20160908
  8. LITICAN [Concomitant]
     Active Substance: ALIZAPRIDE HYDROCHLORIDE
     Dosage: UNK
     Route: 065
     Dates: start: 20160817, end: 20160908
  9. TRADONAL ODIS [Concomitant]
     Dosage: UNK
     Route: 065
     Dates: start: 20170608
  10. AVASTIN [Suspect]
     Active Substance: BEVACIZUMAB
     Dosage: 795 MG, EVERY 3 WEEKS
     Route: 042

REACTIONS (4)
  - Headache [Not Recovered/Not Resolved]
  - Hypokalaemia [Recovered/Resolved]
  - Arthralgia [Not Recovered/Not Resolved]
  - Epistaxis [Not Recovered/Not Resolved]

NARRATIVE: CASE EVENT DATE: 20160831
